FAERS Safety Report 9331087 (Version 1)
Quarter: 2013Q2

REPORT INFORMATION
  Report Type: Spontaneous
  Country: DE (occurrence: DE)
  Receive Date: 20130605
  Receipt Date: 20130605
  Transmission Date: 20140414
  Serious: Yes (Other)
  Sender: FDA-Public Use
  Company Number: DE-BRISTOL-MYERS SQUIBB COMPANY-18972687

PATIENT
  Age: 57 Year
  Sex: Female

DRUGS (6)
  1. LYSODREN TABS 500 MG [Suspect]
     Indication: ADRENOCORTICAL CARCINOMA
     Dosage: 2 PILLS IN THE MRNG?2 PILLS AT MIDDAY?2 PILLS IN THE EVNG
     Dates: start: 201303
  2. HYDROCORTISONE [Concomitant]
  3. KALINOR [Concomitant]
  4. VOTUM PLUS [Concomitant]
  5. BISOPROLOL [Concomitant]
  6. FUROSEMIDE [Concomitant]

REACTIONS (2)
  - Hypercholesterolaemia [Unknown]
  - Liver function test abnormal [Unknown]
